FAERS Safety Report 17390456 (Version 2)
Quarter: 2020Q1

REPORT INFORMATION
  Report Type: Spontaneous
  Country: US (occurrence: US)
  Receive Date: 20200207
  Receipt Date: 20200227
  Transmission Date: 20200409
  Serious: Yes (Hospitalization, Other)
  Sender: FDA-Public Use
  Company Number: US-BRISTOL-MYERS SQUIBB COMPANY-BMS-2020-008992

PATIENT
  Sex: Male
  Weight: 86.18 kg

DRUGS (5)
  1. BENADRYL [Concomitant]
     Active Substance: DIPHENHYDRAMINE HYDROCHLORIDE
     Indication: PRODUCT USED FOR UNKNOWN INDICATION
     Route: 065
  2. OPDIVO [Suspect]
     Active Substance: NIVOLUMAB
     Indication: RENAL CELL CARCINOMA
     Dosage: 125 MG EVERY 2 WEEKS  X 1 MONTH  THEN 250 MG EVERY MONTH
     Route: 042
     Dates: start: 202001
  3. OPDIVO [Suspect]
     Active Substance: NIVOLUMAB
     Indication: PRODUCT USED FOR UNKNOWN INDICATION
     Dosage: 250 MILLIGRAM EVERY MONTH
     Route: 042
  4. HYDROCORTISONE. [Concomitant]
     Active Substance: HYDROCORTISONE
     Indication: PRODUCT USED FOR UNKNOWN INDICATION
     Route: 065
  5. BENADRYL [Concomitant]
     Active Substance: DIPHENHYDRAMINE HYDROCHLORIDE
     Indication: PRODUCT USED FOR UNKNOWN INDICATION
     Route: 065

REACTIONS (12)
  - Prescribed underdose [Unknown]
  - Dehydration [Unknown]
  - White blood cell count increased [Unknown]
  - Influenza like illness [Unknown]
  - Pruritus [Unknown]
  - Feeding disorder [Unknown]
  - Dyspnoea [Unknown]
  - Influenza [Unknown]
  - Vision blurred [Unknown]
  - Upper respiratory tract infection [Unknown]
  - Memory impairment [Unknown]
  - Weight decreased [Unknown]
